FAERS Safety Report 8293455-6 (Version None)
Quarter: 2012Q2

REPORT INFORMATION
  Report Type: 
  Country: None (occurrence: None)
  Receive Date: 20120417
  Receipt Date: 20120410
  Transmission Date: 20120825
  Serious: Yes (Hospitalization)
  Sender: FDA-Public Use
  Company Number: JP-MERCK-1204USA01840

PATIENT
  Age: 64 Year
  Sex: Female

DRUGS (2)
  1. SHA-KANZO-TO [Concomitant]
     Indication: PAIN
     Route: 048
  2. FOSAMAX [Suspect]
     Indication: OSTEOPOROSIS
     Route: 065
     Dates: start: 20090129, end: 20111201

REACTIONS (1)
  - PANCREATIC CARCINOMA [None]
